FAERS Safety Report 10432690 (Version 5)
Quarter: 2015Q2

REPORT INFORMATION
  Report Type: Report from Study
  Country: US (occurrence: US)
  Receive Date: 20140905
  Receipt Date: 20150617
  Transmission Date: 20150821
  Serious: Yes (Other)
  Sender: FDA-Public Use
  Company Number: US-ALEXION-A201403366

PATIENT

DRUGS (1)
  1. SOLIRIS [Suspect]
     Active Substance: ECULIZUMAB
     Indication: PAROXYSMAL NOCTURNAL HAEMOGLOBINURIA
     Dosage: UNK
     Route: 042

REACTIONS (14)
  - Dyspnoea [Not Recovered/Not Resolved]
  - Cough [Unknown]
  - Seasonal allergy [Unknown]
  - Dyspnoea [Not Recovered/Not Resolved]
  - Throat tightness [Recovered/Resolved]
  - Oral herpes [Unknown]
  - Cough [Recovered/Resolved]
  - Infusion related reaction [Unknown]
  - Haemolysis [Unknown]
  - Therapy cessation [Unknown]
  - Hypersensitivity [Unknown]
  - Infusion related reaction [Not Recovered/Not Resolved]
  - Dyspnoea [Unknown]
  - Throat irritation [Unknown]

NARRATIVE: CASE EVENT DATE: 201408
